FAERS Safety Report 5689268-1 (Version None)
Quarter: 2008Q1

REPORT INFORMATION
  Report Type: 
  Country: None (occurrence: None)
  Receive Date: 20080331
  Receipt Date: 20080321
  Transmission Date: 20080703
  Serious: Yes (Hospitalization)
  Sender: FDA-Public Use
  Company Number: US-ELI_LILLY_AND_COMPANY-US200803005076

PATIENT
  Sex: Male

DRUGS (6)
  1. FORTEO [Suspect]
     Indication: OSTEOPOROSIS
     Dates: start: 20060401
  2. MYSOLINE [Concomitant]
     Indication: CONVULSION
  3. CALCIUM [Concomitant]
     Dosage: 1800 MG, DAILY (1/D)
  4. VITAMIN D [Concomitant]
     Dosage: 1800 MG, DAILY (1/D)
  5. ASCORBIC ACID [Concomitant]
  6. OXYGEN [Concomitant]

REACTIONS (7)
  - BLOOD VISCOSITY INCREASED [None]
  - CORONARY ARTERY OCCLUSION [None]
  - COUGH [None]
  - HERNIA [None]
  - MEDICAL DEVICE COMPLICATION [None]
  - MUSCLE DISORDER [None]
  - PNEUMONIA [None]
